FAERS Safety Report 13101013 (Version 1)
Quarter: 2017Q1

REPORT INFORMATION
  Report Type: Spontaneous
  Country: JP (occurrence: JP)
  Receive Date: 20170110
  Receipt Date: 20170110
  Transmission Date: 20170428
  Serious: Yes (Hospitalization)
  Sender: FDA-Public Use
  Company Number: JP-ASTRAZENECA-2017SE01934

PATIENT
  Age: 26 Year
  Sex: Female

DRUGS (7)
  1. MEROPEN [Suspect]
     Active Substance: MEROPENEM
     Indication: MENINGITIS BACTERIAL
     Route: 042
     Dates: start: 20161207, end: 20161216
  2. UNASYN [Concomitant]
     Active Substance: AMPICILLIN SODIUM\SULBACTAM SODIUM
     Indication: MENINGITIS BACTERIAL
     Route: 042
     Dates: start: 20161206, end: 20161207
  3. UNASYN [Concomitant]
     Active Substance: AMPICILLIN SODIUM\SULBACTAM SODIUM
     Indication: MENINGITIS BACTERIAL
     Route: 042
     Dates: start: 20161207, end: 20161207
  4. CLAFORAN [Concomitant]
     Active Substance: CEFOTAXIME SODIUM
     Indication: MENINGITIS BACTERIAL
     Route: 042
     Dates: start: 20161207, end: 20161209
  5. EXCEGRAN [Concomitant]
     Active Substance: ZONISAMIDE
     Indication: EPILEPSY
  6. CERCINE [Concomitant]
     Active Substance: DIAZEPAM
     Indication: EPILEPSY
     Route: 048
  7. MIYA-BM [Concomitant]
     Active Substance: CLOSTRIDIUM BUTYRICUM SPORES STRAIN M-55
     Indication: MENINGITIS BACTERIAL
     Route: 048
     Dates: start: 20161207

REACTIONS (6)
  - Pyrexia [Recovering/Resolving]
  - Drug hypersensitivity [Unknown]
  - Liver disorder [Recovering/Resolving]
  - Rash [Recovering/Resolving]
  - Generalised erythema [Recovering/Resolving]
  - Tubulointerstitial nephritis [Unknown]

NARRATIVE: CASE EVENT DATE: 20161212
